FAERS Safety Report 9282592 (Version 1)
Quarter: 2013Q2

REPORT INFORMATION
  Report Type: Report from Study
  Country: IL (occurrence: IL)
  Receive Date: 20130510
  Receipt Date: 20130510
  Transmission Date: 20140414
  Serious: Yes (Other)
  Sender: FDA-Public Use
  Company Number: PHHY2013IL044742

PATIENT
  Age: 80 Year
  Sex: Female

DRUGS (1)
  1. SANDOSTATIN LAR [Suspect]
     Indication: CARCINOID SYNDROME
     Dosage: 30 MG, ONCE A MONTH
     Dates: start: 20120222

REACTIONS (2)
  - Fall [Unknown]
  - Ankle fracture [Unknown]
